FAERS Safety Report 22830156 (Version 2)
Quarter: 2024Q1

REPORT INFORMATION
  Report Type: Spontaneous
  Country: DE (occurrence: DE)
  Receive Date: 20230816
  Receipt Date: 20240102
  Transmission Date: 20240410
  Serious: Yes (Other)
  Sender: FDA-Public Use
  Company Number: DE-BAXTER-2023BAX024867

PATIENT

DRUGS (17)
  1. DEXAMETHASONE [Suspect]
     Active Substance: DEXAMETHASONE
     Indication: Plasma cell myeloma refractory
     Dosage: UNK, THIRD LINE TREATMENT
     Route: 065
     Dates: start: 20220814, end: 20220910
  2. DEXAMETHASONE [Suspect]
     Active Substance: DEXAMETHASONE
     Dosage: UNK, SECOND LINE TREATMENT
     Dates: start: 20220210, end: 20220810
  3. DEXAMETHASONE [Suspect]
     Active Substance: DEXAMETHASONE
     Dosage: UNK, FIRST LINE TREATMENT
     Dates: start: 20190502, end: 20220131
  4. MELPHALAN [Suspect]
     Active Substance: MELPHALAN
     Indication: Plasma cell myeloma refractory
     Dosage: UNK, FIRST LINE TREATMENT
     Route: 065
     Dates: start: 20190502, end: 20220131
  5. POMALIDOMIDE [Suspect]
     Active Substance: POMALIDOMIDE
     Indication: Plasma cell myeloma refractory
     Dosage: UNK, FIRST LINE TREATMENT
     Route: 065
     Dates: start: 20220210, end: 20220810
  6. POMALIDOMIDE [Suspect]
     Active Substance: POMALIDOMIDE
     Dosage: UNK, SECOND LINE TREATMENT
     Route: 065
     Dates: start: 20220210, end: 20220810
  7. DOXORUBICIN [Suspect]
     Active Substance: DOXORUBICIN
     Indication: Plasma cell myeloma refractory
     Dosage: UNK, FOURTH LINE TREATMENT, AS A PART OF PACE REGIMEN
     Route: 065
     Dates: start: 20220902, end: 20221015
  8. ISATUXIMAB [Suspect]
     Active Substance: ISATUXIMAB
     Indication: Plasma cell myeloma refractory
     Dosage: UNK, THIRD LINE TREATMENT
     Route: 065
     Dates: start: 20220814, end: 20220910
  9. CISPLATIN [Suspect]
     Active Substance: CISPLATIN
     Indication: Plasma cell myeloma refractory
     Dosage: UNK, FOURTH LINE TREATMENT, AS A PART OF PACE REGIMEN
     Route: 065
     Dates: start: 20220902, end: 20221015
  10. CYCLOPHOSPHAMIDE [Suspect]
     Active Substance: CYCLOPHOSPHAMIDE
     Indication: Plasma cell myeloma refractory
     Dosage: UNK, FOURTH LINE TREATMENT, AS A PART OF PACE REGIMEN
     Route: 065
     Dates: start: 20220902, end: 20221015
  11. CYCLOPHOSPHAMIDE [Suspect]
     Active Substance: CYCLOPHOSPHAMIDE
     Dosage: UNK, FIRST LINE TREATMENT
     Dates: start: 20190502, end: 20220131
  12. LENALIDOMIDE [Suspect]
     Active Substance: LENALIDOMIDE
     Indication: Plasma cell myeloma refractory
     Dosage: UNK, FIRST LINE TREATMENT
     Route: 065
     Dates: start: 20190502, end: 20220131
  13. DOXORUBICIN HYDROCHLORIDE [Suspect]
     Active Substance: DOXORUBICIN HYDROCHLORIDE
     Indication: Plasma cell myeloma refractory
     Dosage: UNK, FIFTH LINE TREATMENT, 2MG/ML
     Route: 065
     Dates: start: 20221027, end: 20221110
  14. BORTEZOMIB [Suspect]
     Active Substance: BORTEZOMIB
     Indication: Plasma cell myeloma refractory
     Dosage: UNK, FIRST LINE TREATMENT
     Route: 065
     Dates: start: 20190502, end: 20220131
  15. CARFILZOMIB [Suspect]
     Active Substance: CARFILZOMIB
     Indication: Plasma cell myeloma refractory
     Dosage: UNK, THIRD LINE TREATMENT
     Route: 065
     Dates: start: 20220814, end: 20220910
  16. DARATUMUMAB [Suspect]
     Active Substance: DARATUMUMAB
     Indication: Plasma cell myeloma refractory
     Dosage: UNK, SECOND LINE TREATMENT
     Route: 065
     Dates: start: 20220210, end: 20220810
  17. ETOPOSIDE [Suspect]
     Active Substance: ETOPOSIDE
     Indication: Plasma cell myeloma refractory
     Dosage: UNK, FOURTH LINE TREATMENT, AS A PART OF PACE REGIMEN
     Route: 065
     Dates: start: 20220902, end: 20221015

REACTIONS (2)
  - Plasma cell myeloma [Unknown]
  - Disease progression [Unknown]
